FAERS Safety Report 19144649 (Version 1)
Quarter: 2021Q2

REPORT INFORMATION
  Report Type: Spontaneous
  Country: FR (occurrence: FR)
  Receive Date: 20210416
  Receipt Date: 20210416
  Transmission Date: 20210717
  Serious: Yes (Other)
  Sender: FDA-Public Use
  Company Number: FR-CELLTRION INC.-2021FR004704

PATIENT

DRUGS (5)
  1. CYCLOPHOSPHAMIDE. [Suspect]
     Active Substance: CYCLOPHOSPHAMIDE
     Indication: CRYOGLOBULINAEMIA
     Dosage: UNK
     Route: 065
     Dates: start: 2008, end: 2017
  2. AZATHIOPRINE. [Suspect]
     Active Substance: AZATHIOPRINE
     Indication: CRYOGLOBULINAEMIA
     Dosage: UNK
     Route: 065
     Dates: start: 2008, end: 2017
  3. RITUXIMAB (UNKNOWN) [Suspect]
     Active Substance: RITUXIMAB
     Indication: CRYOGLOBULINAEMIA
     Dosage: 375 MG/M2
     Route: 042
     Dates: start: 2008, end: 2017
  4. RITUXIMAB (UNKNOWN) [Suspect]
     Active Substance: RITUXIMAB
     Dosage: 375 MG/M2
     Route: 042
     Dates: start: 201412, end: 201809
  5. BELIMUMAB [Suspect]
     Active Substance: BELIMUMAB
     Indication: CRYOGLOBULINAEMIA
     Dosage: 10 MG/KG
     Route: 042

REACTIONS (3)
  - Hypogammaglobulinaemia [Unknown]
  - Off label use [Unknown]
  - Urinary tract infection [Recovered/Resolved]
